FAERS Safety Report 9134281 (Version 1)
Quarter: 2013Q1

REPORT INFORMATION
  Report Type: Spontaneous
  Country: US (occurrence: US)
  Receive Date: 20130304
  Receipt Date: 20130304
  Transmission Date: 20140127
  Serious: No
  Sender: FDA-Public Use
  Company Number: US-009507513-1303USA000650

PATIENT
  Sex: Female
  Weight: 74.83 kg

DRUGS (3)
  1. IMPLANON [Suspect]
     Indication: CONTRACEPTION
     Dosage: 1 ROD
     Dates: start: 20120404
  2. SEROQUEL [Concomitant]
     Dosage: UNK
  3. CLONIDINE [Concomitant]
     Dosage: UNK

REACTIONS (3)
  - Amenorrhoea [Recovered/Resolved]
  - Metrorrhagia [Not Recovered/Not Resolved]
  - Device dislocation [Not Recovered/Not Resolved]
